FAERS Safety Report 12691724 (Version 1)
Quarter: 2016Q3

REPORT INFORMATION
  Report Type: Spontaneous
  Country: GB (occurrence: GB)
  Receive Date: 20160826
  Receipt Date: 20160826
  Transmission Date: 20161109
  Serious: Yes (Disabling)
  Sender: FDA-Public Use
  Company Number: GB-ABBVIE-16P-167-1698236-00

PATIENT
  Age: 81 Year
  Sex: Male
  Weight: 85 kg

DRUGS (2)
  1. PROSTAP 3 [Suspect]
     Active Substance: LEUPROLIDE ACETATE
     Dosage: 11.25 MG, Q3MONTHS
     Route: 065
     Dates: start: 20160803, end: 20160803
  2. PROSTAP 3 [Suspect]
     Active Substance: LEUPROLIDE ACETATE
     Indication: PROSTATE CANCER
     Dosage: 11.25 MG, Q3MONTHS
     Route: 065
     Dates: start: 20160425, end: 20160425

REACTIONS (18)
  - Injection site reaction [Unknown]
  - Monocyte count increased [Unknown]
  - Blood albumin decreased [Unknown]
  - Nervous system disorder [Not Recovered/Not Resolved]
  - Chest pain [Unknown]
  - Impaired work ability [Unknown]
  - Haematocrit decreased [Unknown]
  - Red blood cell count decreased [Unknown]
  - White blood cell count increased [Unknown]
  - Peripheral swelling [Unknown]
  - Haemoglobin decreased [Unknown]
  - Injection site swelling [Unknown]
  - Sleep disorder [Unknown]
  - Neutrophil count increased [Unknown]
  - Blood sodium decreased [Unknown]
  - Hypoaesthesia [Unknown]
  - Axillary pain [Unknown]
  - Administration site mass [Not Recovered/Not Resolved]

NARRATIVE: CASE EVENT DATE: 20160610
